FAERS Safety Report 7411610-1 (Version None)
Quarter: 2011Q2

REPORT INFORMATION
  Report Type: 
  Country: None (occurrence: None)
  Receive Date: 20110413
  Receipt Date: 20101108
  Transmission Date: 20111010
  Serious: Yes (Other)
  Sender: FDA-Public Use
  Company Number: US-BRISTOL-MYERS SQUIBB COMPANY-15306392

PATIENT
  Age: 59 Year
  Sex: Female

DRUGS (5)
  1. STEROIDS [Concomitant]
  2. H1 ANTAGONIST [Concomitant]
  3. H2 ANTAGONIST [Concomitant]
  4. ERBITUX [Suspect]
     Indication: TONGUE NEOPLASM MALIGNANT STAGE UNSPECIFIED
     Route: 041
     Dates: start: 20100922
  5. ALBUTEROL INHALER [Concomitant]
     Route: 055

REACTIONS (1)
  - ANAPHYLACTIC REACTION [None]
